FAERS Safety Report 25050813 (Version 1)
Quarter: 2025Q1

REPORT INFORMATION
  Report Type: Spontaneous
  Country: US (occurrence: US)
  Receive Date: 20250307
  Receipt Date: 20250307
  Transmission Date: 20250409
  Serious: Yes (Other)
  Sender: CSL BEHRING
  Company Number: US-BEH-2025198007

PATIENT
  Age: 32 Year
  Sex: Female

DRUGS (1)
  1. HAEGARDA [Suspect]
     Active Substance: HUMAN C1-ESTERASE INHIBITOR
     Indication: Hereditary angioedema
     Route: 065

REACTIONS (3)
  - Hereditary angioedema [Recovered/Resolved]
  - Injection site pain [Recovered/Resolved]
  - Product dose omission in error [Unknown]
